FAERS Safety Report 18494811 (Version 1)
Quarter: 2020Q4

REPORT INFORMATION
  Report Type: Spontaneous
  Country: US (occurrence: US)
  Receive Date: 20201111
  Receipt Date: 20201111
  Transmission Date: 20210114
  Serious: Yes (Other)
  Sender: FDA-Public Use
  Company Number: None

PATIENT
  Age: 81 Year
  Sex: Female
  Weight: 74.2 kg

DRUGS (60)
  1. ALBUMIN [Concomitant]
     Active Substance: ALBUMIN HUMAN
  2. CALCIUM GLUCONATE. [Concomitant]
     Active Substance: CALCIUM GLUCONATE
  3. FENTANYL. [Concomitant]
     Active Substance: FENTANYL
  4. HYDROMORPHONE [Concomitant]
     Active Substance: HYDROMORPHONE
  5. INSULIN LISPRO [Concomitant]
     Active Substance: INSULIN LISPRO
  6. ROCURONIUM [Concomitant]
     Active Substance: ROCURONIUM BROMIDE
  7. VASOPRESSIN. [Concomitant]
     Active Substance: VASOPRESSIN
  8. D10W [Concomitant]
     Active Substance: DEXTROSE\WATER
  9. D5-LR [Concomitant]
  10. DEXTROSE. [Concomitant]
     Active Substance: DEXTROSE
  11. DORZOLAMIDE-TIMOLOL [Concomitant]
     Active Substance: DORZOLAMIDE\TIMOLOL
  12. MIDAZOLAM. [Concomitant]
     Active Substance: MIDAZOLAM
  13. MIDODRINE [Concomitant]
     Active Substance: MIDODRINE
  14. PIPERACIL-TAZ [Concomitant]
  15. SODIUM CHLORIDE. [Concomitant]
     Active Substance: SODIUM CHLORIDE
  16. SODIUM PHOSPHATE [Concomitant]
     Active Substance: SODIUM PHOSPHATE
  17. AZITHROMYCIN ANHYDROUS. [Concomitant]
     Active Substance: AZITHROMYCIN ANHYDROUS
  18. NPH INSULIN [Concomitant]
     Active Substance: INSULIN BEEF
  19. IOHEXOL [Concomitant]
     Active Substance: IOHEXOL
  20. MEROPENIUM [Concomitant]
  21. POLYETHYLENE GLYC [Concomitant]
  22. PREMIX TITRATABLE [Concomitant]
  23. ACETAMINOPHEN. [Concomitant]
     Active Substance: ACETAMINOPHEN
  24. BLASCODYL [Concomitant]
  25. ENOXAPARIN [Concomitant]
     Active Substance: ENOXAPARIN
  26. FAMOTIDINE. [Concomitant]
     Active Substance: FAMOTIDINE
  27. LORAZEPAM. [Concomitant]
     Active Substance: LORAZEPAM
  28. MAGNESIUM SUFLATE [Concomitant]
  29. METRONIDAZOLE. [Concomitant]
     Active Substance: METRONIDAZOLE
  30. PROPOFOL. [Concomitant]
     Active Substance: PROPOFOL
  31. ACETAZOLAMIDE. [Concomitant]
     Active Substance: ACETAZOLAMIDE
  32. CEFEPIME [Concomitant]
     Active Substance: CEFEPIME HYDROCHLORIDE
  33. CHLORHEXIDINE [Concomitant]
     Active Substance: CHLORHEXIDINE
  34. DEXTROSE, UNSPECIFIED FORM. [Concomitant]
     Active Substance: DEXTROSE, UNSPECIFIED FORM
  35. DEXAMEDETOMIDINE [Concomitant]
  36. CEFTRIAXONE. [Concomitant]
     Active Substance: CEFTRIAXONE
  37. CLONIDINE. [Concomitant]
     Active Substance: CLONIDINE
  38. MUPIROCIN. [Concomitant]
     Active Substance: MUPIROCIN
  39. OXYCODONE [Concomitant]
     Active Substance: OXYCODONE
  40. SODIUM ZIRCONIUM CYCLOSILICATE. [Concomitant]
     Active Substance: SODIUM ZIRCONIUM CYCLOSILICATE
  41. CHLORHEXIDINE GLUCONATE ORAL RINSE 0.12 % [Suspect]
     Active Substance: CHLORHEXIDINE GLUCONATE
     Indication: ANTIBIOTIC PROPHYLAXIS
     Route: 002
     Dates: start: 20201016, end: 20201028
  42. DOCUSATE SOD [Concomitant]
  43. HYDROCORTISONE. [Concomitant]
     Active Substance: HYDROCORTISONE
  44. INSULIN GLARGINE [Concomitant]
     Active Substance: INSULIN GLARGINE
  45. METHYLPREDNIS SOD [Concomitant]
  46. MULTIVITAMIN RENAL [Concomitant]
  47. PROPAFENONE. [Concomitant]
     Active Substance: PROPAFENONE
  48. SIMVASTATIN. [Concomitant]
     Active Substance: SIMVASTATIN
  49. VANCOMYCIN [Concomitant]
     Active Substance: VANCOMYCIN
  50. FUROSEMIDE. [Concomitant]
     Active Substance: FUROSEMIDE
  51. HALOPERIDOL. [Concomitant]
     Active Substance: HALOPERIDOL
  52. INSULIN REGULAR [Concomitant]
     Active Substance: INSULIN NOS
  53. LACTATED RINGERS SOLUTION [Concomitant]
     Active Substance: CALCIUM CHLORIDE\POTASSIUM CHLORIDE\SODIUM CHLORIDE\SODIUM LACTATE
  54. LACTULOSE. [Concomitant]
     Active Substance: LACTULOSE
  55. LATANOPROST. [Concomitant]
     Active Substance: LATANOPROST
  56. METOPROLOL. [Concomitant]
     Active Substance: METOPROLOL
  57. NOREPINEPHRINE. [Concomitant]
     Active Substance: NOREPINEPHRINE
  58. NS EXCEL BAG [Concomitant]
  59. QUETIAPINE. [Concomitant]
     Active Substance: QUETIAPINE
  60. SENNA [Concomitant]
     Active Substance: SENNA LEAF\SENNOSIDES\SENNOSIDES A AND B

REACTIONS (4)
  - Product contamination microbial [None]
  - Recalled product [None]
  - Product quality issue [None]
  - Burkholderia test positive [None]

NARRATIVE: CASE EVENT DATE: 20201102
